FAERS Safety Report 14088436 (Version 1)
Quarter: 2017Q4

REPORT INFORMATION
  Report Type: Spontaneous
  Country: US (occurrence: US)
  Receive Date: 20171013
  Receipt Date: 20171013
  Transmission Date: 20180321
  Serious: No
  Sender: FDA-Public Use
  Company Number: US-ACTELION-A-US2017-160730

PATIENT
  Age: 48 Year
  Sex: Male

DRUGS (1)
  1. OPSUMIT [Suspect]
     Active Substance: MACITENTAN
     Indication: PULMONARY ARTERIAL HYPERTENSION
     Dosage: 10 MG, QD
     Route: 048
     Dates: start: 20170309

REACTIONS (5)
  - Pyrexia [Unknown]
  - Sneezing [Unknown]
  - Upper-airway cough syndrome [Unknown]
  - Seasonal allergy [Unknown]
  - Rhinorrhoea [Unknown]
